FAERS Safety Report 22896369 (Version 2)
Quarter: 2023Q4

REPORT INFORMATION
  Report Type: Spontaneous
  Country: AU (occurrence: AU)
  Receive Date: 20230901
  Receipt Date: 20231003
  Transmission Date: 20240110
  Serious: Yes (Other)
  Sender: FDA-Public Use
  Company Number: AU-PFIZER INC-202300272224

PATIENT
  Sex: Female

DRUGS (5)
  1. CYKLOKAPRON [Suspect]
     Active Substance: TRANEXAMIC ACID
     Dosage: 500 MG, 2 TDS
     Dates: start: 20220925
  2. SYMBICORT [Concomitant]
     Active Substance: BUDESONIDE\FORMOTEROL FUMARATE DIHYDRATE
     Dosage: 100/3
  3. REXULTI [Concomitant]
     Active Substance: BREXPIPRAZOLE
     Dosage: 3T 2MG
  4. OLANZAPINE [Concomitant]
     Active Substance: OLANZAPINE
     Dosage: 15 MG
  5. INTUNIV [Concomitant]
     Active Substance: GUANFACINE HYDROCHLORIDE
     Dosage: 4MG P 1MG

REACTIONS (2)
  - Rash [Unknown]
  - Product complaint [Unknown]

NARRATIVE: CASE EVENT DATE: 20230809
